FAERS Safety Report 8293999-7 (Version None)
Quarter: 2012Q2

REPORT INFORMATION
  Report Type: 
  Country: None (occurrence: None)
  Receive Date: 20120418
  Receipt Date: 20120416
  Transmission Date: 20120825
  Serious: Yes (Other)
  Sender: FDA-Public Use
  Company Number: US-PFIZER INC-2012094051

PATIENT
  Sex: Female

DRUGS (1)
  1. SUTENT [Suspect]
     Indication: MALIGNANT NEOPLASM OF EYE
     Dosage: 25 MG, 1X/DAY
     Dates: start: 20120206, end: 20120101

REACTIONS (2)
  - HAIR COLOUR CHANGES [None]
  - VAGINAL HAEMORRHAGE [None]
